FAERS Safety Report 14184364 (Version 1)
Quarter: 2017Q4

REPORT INFORMATION
  Report Type: Spontaneous
  Country: US (occurrence: US)
  Receive Date: 20171113
  Receipt Date: 20171113
  Transmission Date: 20180321
  Serious: No
  Sender: FDA-Public Use
  Company Number: US-BAYER-2017-217843

PATIENT
  Age: 93 Year
  Sex: Female
  Weight: 52.97 kg

DRUGS (3)
  1. MIRALAX [Suspect]
     Active Substance: POLYETHYLENE GLYCOL 3350
     Indication: GASTROINTESTINAL DISORDER
     Dosage: UNK (17G IN 8 OZ OF WATER )
     Route: 048
     Dates: start: 20171103, end: 20171108
  2. ANTICOAGULANT CIT PHOS DEX ADENINE [Concomitant]
     Active Substance: CITRIC ACID MONOHYDRATE\DEXTROSE\SODIUM CITRATE\SODIUM PHOSPHATE, MONOBASIC
  3. WARFARIN [Concomitant]
     Active Substance: WARFARIN

REACTIONS (3)
  - Poor quality drug administered [Unknown]
  - Dysgeusia [Unknown]
  - Product odour abnormal [Unknown]

NARRATIVE: CASE EVENT DATE: 20171103
